FAERS Safety Report 18864512 (Version 1)
Quarter: 2021Q1

REPORT INFORMATION
  Report Type: Spontaneous
  Country: US (occurrence: US)
  Receive Date: 20210208
  Receipt Date: 20210208
  Transmission Date: 20210420
  Serious: Yes (Hospitalization)
  Sender: FDA-Public Use
  Company Number: None

PATIENT
  Age: 78 Year
  Sex: Female
  Weight: 46 kg

DRUGS (8)
  1. ENALAPRIL 20 MG [Concomitant]
     Active Substance: ENALAPRIL
  2. OMEPRAZOLE 20 MG [Concomitant]
     Active Substance: OMEPRAZOLE
  3. BAMLANIVIMAB. [Suspect]
     Active Substance: BAMLANIVIMAB
     Indication: COVID-19
     Dosage: ?          OTHER FREQUENCY:ONCE;?
     Route: 042
     Dates: start: 20210204
  4. METFORMIN [Concomitant]
     Active Substance: METFORMIN HYDROCHLORIDE
  5. GABAPENTIN 100 MG [Concomitant]
     Active Substance: GABAPENTIN
  6. LEVEMIR 100 UNIT/ML [Concomitant]
  7. MELOXICAM 15 MG [Concomitant]
     Active Substance: MELOXICAM
  8. ROSUVASTATIN 20 MG [Concomitant]
     Active Substance: ROSUVASTATIN

REACTIONS (8)
  - Fatigue [None]
  - Dyspnoea [None]
  - Pyrexia [None]
  - Cough [None]
  - Decreased appetite [None]
  - Wheezing [None]
  - Diarrhoea [None]
  - COVID-19 pneumonia [None]

NARRATIVE: CASE EVENT DATE: 20210207
